FAERS Safety Report 4444703-1 (Version None)
Quarter: 2004Q3

REPORT INFORMATION
  Report Type: 
  Country: None (occurrence: None)
  Receive Date: 20040902
  Receipt Date: 20040816
  Transmission Date: 20050211
  Serious: Yes (Hospitalization)
  Sender: FDA-Public Use
  Company Number: US-2004-030399

PATIENT
  Age: 38 Year
  Sex: Female

DRUGS (2)
  1. BETASERON [Suspect]
     Indication: MULTIPLE SCLEROSIS
     Dosage: 2 MIU, EVERY 2D, SUBCUTANEOUS
     Route: 058
     Dates: start: 20040809
  2. METHYLPREDNISOLONE [Suspect]
     Dosage: INTRAVENOUS
     Route: 042
     Dates: start: 20040801, end: 20040801

REACTIONS (3)
  - DIFFICULTY IN WALKING [None]
  - DYSPNOEA [None]
  - TREMOR [None]
